FAERS Safety Report 8505922-8 (Version None)
Quarter: 2012Q3

REPORT INFORMATION
  Report Type: 
  Country: None (occurrence: None)
  Receive Date: 20120712
  Receipt Date: 20120703
  Transmission Date: 20120928
  Serious: Yes (Hospitalization)
  Sender: FDA-Public Use
  Company Number: FR-ASTRAZENECA-2012SE45798

PATIENT
  Age: 25380 Day
  Sex: Female

DRUGS (11)
  1. MEROPENEM [Suspect]
     Route: 042
     Dates: start: 20120409, end: 20120430
  2. ACUPAN [Suspect]
     Dates: start: 20120409
  3. ACETAMINOPHEN [Suspect]
     Dates: start: 20120409
  4. PHENYTOIN SODIUM [Suspect]
     Indication: CONVULSION PROPHYLAXIS
     Dates: start: 20120409, end: 20120430
  5. FOSFOMYCINE [Suspect]
     Dates: start: 20120406
  6. KEPPRA [Concomitant]
     Dates: start: 20120514, end: 20120515
  7. POTASSIUM CHLORIDE [Concomitant]
     Dates: start: 20120409
  8. SETRON [Concomitant]
     Dates: start: 20120409
  9. CLAFORAN [Suspect]
     Dates: start: 20120406
  10. LOVENOX [Concomitant]
     Dosage: 0.4 / DAY
     Dates: start: 20120409
  11. ZYVOX [Suspect]
     Dates: start: 20120409, end: 20120430

REACTIONS (2)
  - STEVENS-JOHNSON SYNDROME [None]
  - DRUG RASH WITH EOSINOPHILIA AND SYSTEMIC SYMPTOMS [None]
